FAERS Safety Report 7710190-0 (Version None)
Quarter: 2011Q3

REPORT INFORMATION
  Report Type: 
  Country: None (occurrence: None)
  Receive Date: 20110825
  Receipt Date: 20110718
  Transmission Date: 20111222
  Serious: No
  Sender: FDA-Public Use
  Company Number: US-MYLANLABS-2011S1015110

PATIENT
  Age: 65 Year
  Sex: Female
  Weight: 65.77 kg

DRUGS (3)
  1. FOSAMAX [Concomitant]
  2. LEVETIRACETAM [Suspect]
     Route: 048
     Dates: start: 20110601
  3. LEVETIRACETAM [Suspect]
     Indication: CONVULSION
     Route: 048
     Dates: start: 20110601

REACTIONS (1)
  - FATIGUE [None]
